FAERS Safety Report 25323422 (Version 1)
Quarter: 2025Q2

REPORT INFORMATION
  Report Type: Spontaneous
  Country: FR (occurrence: FR)
  Receive Date: 20250516
  Receipt Date: 20250516
  Transmission Date: 20250716
  Serious: Yes (Other)
  Sender: REGENERON
  Company Number: FR-BAYER-2025A064431

PATIENT
  Sex: Male

DRUGS (3)
  1. EYLEA HD [Suspect]
     Active Substance: AFLIBERCEPT
     Indication: Product used for unknown indication
     Route: 031
     Dates: start: 20250311, end: 20250311
  2. EYLEA HD [Suspect]
     Active Substance: AFLIBERCEPT
     Route: 031
  3. EYLEA HD [Suspect]
     Active Substance: AFLIBERCEPT
     Route: 031
     Dates: start: 20250505, end: 20250505

REACTIONS (6)
  - Ulcerative keratitis [Unknown]
  - Vitritis [Unknown]
  - Cataract [Unknown]
  - Visual acuity reduced [Unknown]
  - Anterior chamber flare [Unknown]
  - Vitreous floaters [Unknown]

NARRATIVE: CASE EVENT DATE: 20250405
